FAERS Safety Report 22371930 (Version 1)
Quarter: 2023Q2

REPORT INFORMATION
  Report Type: Spontaneous
  Country: US (occurrence: US)
  Receive Date: 20230526
  Receipt Date: 20230526
  Transmission Date: 20230722
  Serious: Yes (Other)
  Sender: FDA-Public Use
  Company Number: US-MYLANLABS-2023M1053445

PATIENT
  Age: 20 Year

DRUGS (1)
  1. ESCITALOPRAM [Suspect]
     Active Substance: ESCITALOPRAM OXALATE
     Indication: Product used for unknown indication
     Dosage: 1780 MILLIGRAM
     Route: 065

REACTIONS (4)
  - Electrocardiogram QRS complex prolonged [Recovering/Resolving]
  - Intentional product misuse [Unknown]
  - Intentional overdose [Recovering/Resolving]
  - Bundle branch block right [Recovering/Resolving]
